FAERS Safety Report 5504362-3 (Version None)
Quarter: 2007Q4

REPORT INFORMATION
  Report Type: 
  Country: None (occurrence: None)
  Receive Date: 20071030
  Receipt Date: 20071022
  Transmission Date: 20080405
  Serious: Yes (Hospitalization)
  Sender: FDA-Public Use
  Company Number: GXKR2007GB09084

PATIENT
  Age: 58 Year
  Sex: Male

DRUGS (5)
  1. CLARITHROMYCIN [Suspect]
     Indication: LOWER RESPIRATORY TRACT INFECTION
     Dosage: 500 MG, BID, ORAL
     Route: 048
  2. NEVIRAPINE [Suspect]
     Indication: HIV ANTIBODY POSITIVE
     Dosage: 200 MG, BID, ORAL
     Route: 048
  3. ZIDOVUDINE [Concomitant]
  4. DIDANOSINE (DIDANOSINE, DIDOXYINOSINE) [Concomitant]
  5. SIMVASTATIN [Concomitant]

REACTIONS (7)
  - ANXIETY [None]
  - DRUG INTERACTION [None]
  - HOMICIDAL IDEATION [None]
  - MENTAL DISORDER [None]
  - PRESSURE OF SPEECH [None]
  - PSYCHOMOTOR HYPERACTIVITY [None]
  - SUICIDAL IDEATION [None]
